FAERS Safety Report 4350167-9 (Version None)
Quarter: 2004Q2

REPORT INFORMATION
  Report Type: 
  Country: None (occurrence: None)
  Receive Date: 20040428
  Receipt Date: 20040428
  Transmission Date: 20050107
  Serious: Yes (Hospitalization)
  Sender: FDA-Public Use
  Company Number: None

PATIENT
  Age: 79 Year
  Sex: Male
  Weight: 154.223 kg

DRUGS (10)
  1. CLOPIDOGREL BISULFATE [Suspect]
     Dosage: 75 MG DAILY
     Dates: start: 20021101, end: 20040227
  2. ALOH/MGOH/SIMETH EXTRA STRENGTH [Concomitant]
  3. LATANOPROST [Concomitant]
  4. PROPOXYPHENE N 100 /APAP [Concomitant]
  5. CLOTRIMAZOLE [Concomitant]
  6. CHLORPHENIRAMINE MALEATE [Concomitant]
  7. RANITIDINE HCL [Concomitant]
  8. VERAPAMIL HCL [Concomitant]
  9. FUROSEMIDE [Concomitant]
  10. THIAMINE HCL [Concomitant]

REACTIONS (1)
  - RECTAL HAEMORRHAGE [None]
